FAERS Safety Report 17334522 (Version 1)
Quarter: 2020Q1

REPORT INFORMATION
  Report Type: Spontaneous
  Country: ES (occurrence: ES)
  Receive Date: 20200128
  Receipt Date: 20200128
  Transmission Date: 20200409
  Serious: Yes (Hospitalization)
  Sender: FDA-Public Use
  Company Number: ES-TEVA-2020-ES-1174514

PATIENT
  Age: 83 Year
  Sex: Female

DRUGS (10)
  1. OMEPRAZOL (2141A) [Concomitant]
     Active Substance: OMEPRAZOLE
     Dosage: 20 MG 1 DAYS
     Route: 048
  2. LORMETAZEPAM (88A) [Concomitant]
     Active Substance: LORMETAZEPAM
     Dosage: 2 MG 1 DAYS
     Route: 048
  3. BONVIVA 150 MG, COMPRIMIDOS RECUBIERTOS CON PELICULA, 1 COMPRIMIDO [Concomitant]
     Indication: OSTEOPOROSIS
     Dosage: 150 MG 1 MONTHS
     Route: 048
  4. TRAZODONA (3160A) [Concomitant]
     Active Substance: TRAZODONE HYDROCHLORIDE
     Dosage: 100 MG 1 DAYS
     Route: 048
  5. HIDROCLOROTIAZIDA (1343A) [Interacting]
     Active Substance: HYDROCHLOROTHIAZIDE
     Indication: HYPERTENSION
     Dosage: 12.5 MG 1 DAYS
     Route: 048
     Dates: start: 20180205, end: 20180207
  6. HIDROFEROL 0,266 MG CAPSULAS BLANDAS , 5 C?PSULAS (BLISTER PVC/PVDC-AL [Concomitant]
     Indication: OSTEOPOROSIS
     Dosage: 266 MICROGRAM 2 MONTHS
     Route: 048
  7. ZALDIAR 37,5 MG/325 MG COMPRIMIDOS RECUBIERTOS CON PELICULA , 60 COMPR [Concomitant]
     Dosage: 1 DOSAGE FORMS 8 HOURS
     Route: 048
  8. ALENDRONICO ACIDO (2781A) [Concomitant]
     Indication: OSTEOPOROSIS
     Dosage: 70 MG 7 DAYS
     Route: 048
  9. LORAZEPAM (1864A) [Concomitant]
     Active Substance: LORAZEPAM
     Dosage: 0.5 MG 1 DAYS
     Route: 048
  10. ENALAPRIL + HIDROCLOROTIAZIDA [Suspect]
     Active Substance: ENALAPRIL MALEATE\HYDROCHLOROTHIAZIDE
     Indication: HYPERTENSION
     Dosage: 1 DOSAGE FORMS 1 DAYS
     Route: 048
     Dates: start: 2017

REACTIONS (2)
  - Drug interaction [Unknown]
  - Hyponatraemia [Recovered/Resolved]

NARRATIVE: CASE EVENT DATE: 20180207
